FAERS Safety Report 8886840 (Version 1)
Quarter: 2012Q4

REPORT INFORMATION
  Report Type: 
  Country: US (occurrence: US)
  Receive Date: 20121105
  Receipt Date: 20121105
  Transmission Date: 20130627
  Serious: Yes (Other)
  Sender: FDA-Public Use
  Company Number: US-PFIZER INC-2012272416

PATIENT
  Age: 69 Year
  Sex: Female
  Weight: 43.54 kg

DRUGS (4)
  1. CELEBREX [Suspect]
     Indication: ARTHRITIS
     Dosage: 200 mg, 2x/day
  2. CELEBREX [Suspect]
     Dosage: 200 mg, daily
     Dates: end: 201210
  3. TYLENOL ARTHRITIS PAIN [Suspect]
     Indication: HAND SWELLING
     Dosage: UNK
     Dates: end: 201210
  4. ISTALOL [Concomitant]
     Indication: GLAUCOMA
     Dosage: 1 Gtt, daily
     Route: 047

REACTIONS (6)
  - Inappropriate schedule of drug administration [Unknown]
  - Joint range of motion decreased [Not Recovered/Not Resolved]
  - Cataract [Unknown]
  - Oedema peripheral [Not Recovered/Not Resolved]
  - Pain [Not Recovered/Not Resolved]
  - Drug ineffective [Unknown]
